FAERS Safety Report 4341094-1 (Version None)
Quarter: 2004Q2

REPORT INFORMATION
  Report Type: 
  Country: None (occurrence: None)
  Receive Date: 20040419
  Receipt Date: 20040412
  Transmission Date: 20050107
  Serious: Yes (Other)
  Sender: FDA-Public Use
  Company Number: FR-ROCHE-364096

PATIENT
  Sex: Female

DRUGS (2)
  1. NICARDIPINE HCL [Suspect]
     Indication: PREMATURE LABOUR
     Dosage: TREATMENT STARTED AT 3MG/HR AN INCREASED TO A MAXIMUM OF 6MG/HR.
     Route: 042
  2. BETAMETHASONE [Concomitant]
     Indication: PREMATURE LABOUR
     Route: 030

REACTIONS (3)
  - ACUTE PULMONARY OEDEMA [None]
  - COMPLICATIONS OF MATERNAL EXPOSURE TO THERAPEUTIC DRUGS [None]
  - PREMATURE BABY [None]
